FAERS Safety Report 17930207 (Version 1)
Quarter: 2020Q2

REPORT INFORMATION
  Report Type: Spontaneous
  Country: KR (occurrence: KR)
  Receive Date: 20200623
  Receipt Date: 20200623
  Transmission Date: 20200714
  Serious: Yes (Hospitalization)
  Sender: FDA-Public Use
  Company Number: KR-TEVA-2020-KR-1790151

PATIENT
  Sex: Male

DRUGS (13)
  1. ETOPOSIDE. [Suspect]
     Active Substance: ETOPOSIDE
     Dosage: WITH MELPHALAN AND CARBOPLATIN
     Route: 065
  2. DOXORUBICIN [Suspect]
     Active Substance: DOXORUBICIN
     Indication: NEUROBLASTOMA
     Dosage: FOUR CYCLES
     Route: 065
  3. ISOTRETINOIN. [Suspect]
     Active Substance: ISOTRETINOIN
     Indication: APOPTOSIS
  4. TOPOTECAN [Suspect]
     Active Substance: TOPOTECAN HYDROCHLORIDE
     Indication: NEUROBLASTOMA
     Route: 065
  5. THIOTEPA. [Suspect]
     Active Substance: THIOTEPA
     Indication: NEUROBLASTOMA
     Route: 065
  6. CARBOPLATIN. [Suspect]
     Active Substance: CARBOPLATIN
     Dosage: WITH MELPHALAN AND ETOPOSIDE
     Route: 065
  7. ISOTRETINOIN. [Suspect]
     Active Substance: ISOTRETINOIN
     Indication: NEUROBLASTOMA
     Dosage: 60 MILLIGRAM DAILY;
     Route: 065
  8. ETOPOSIDE. [Suspect]
     Active Substance: ETOPOSIDE
     Indication: NEUROBLASTOMA
     Dosage: FOUR CYCLES (WITH CYCLOPHOSPHAMIDE, CISPLATIN, AND DOXORUBICIN)
     Route: 065
  9. CARBOPLATIN. [Suspect]
     Active Substance: CARBOPLATIN
     Indication: NEUROBLASTOMA
     Dosage: WITH TOPOTECAN AND THIOTEPA
     Route: 065
  10. CISPLATIN. [Suspect]
     Active Substance: CISPLATIN
     Indication: NEUROBLASTOMA
     Dosage: FOUR CYCLES
     Route: 065
  11. CYCLOPHOSPHAMIDE. [Suspect]
     Active Substance: CYCLOPHOSPHAMIDE
     Indication: NEUROBLASTOMA
     Dosage: FOUR CYCLES
     Route: 065
  12. MELPHALAN. [Suspect]
     Active Substance: MELPHALAN
     Indication: NEUROBLASTOMA
     Route: 065
  13. INTERLEUKIN-2 [Suspect]
     Active Substance: ALDESLEUKIN
     Indication: NEUROBLASTOMA
     Dosage: INJECTED 30 TIMES WITH A 2-WEEK INTERVAL
     Route: 058

REACTIONS (3)
  - Epiphyses premature fusion [Recovered/Resolved]
  - Short stature [Unknown]
  - Knee deformity [Recovered/Resolved]
